FAERS Safety Report 4920059-2 (Version None)
Quarter: 2006Q1

REPORT INFORMATION
  Report Type: 
  Country: None (occurrence: None)
  Receive Date: 20060217
  Receipt Date: 20060209
  Transmission Date: 20060701
  Serious: Yes (Other)
  Sender: FDA-Public Use
  Company Number: 163-20785-06020273

PATIENT
  Age: 68 Year
  Sex: Female

DRUGS (1)
  1. THALOMID [Suspect]
     Indication: MYELOFIBROSIS
     Dosage: 100 MG, DAILY, ORAL
     Route: 048
     Dates: start: 20051001, end: 20051201

REACTIONS (3)
  - GANGRENE [None]
  - INFECTION [None]
  - SKIN DISCOLOURATION [None]
